FAERS Safety Report 9188828 (Version 1)
Quarter: 2013Q1

REPORT INFORMATION
  Report Type: Spontaneous
  Country: GB (occurrence: GB)
  Receive Date: 20130326
  Receipt Date: 20130326
  Transmission Date: 20140127
  Serious: Yes (Disabling)
  Sender: FDA-Public Use
  Company Number: GB-009507513-1303GBR011598

PATIENT
  Age: 42 Year
  Sex: Female
  Weight: 62 kg

DRUGS (6)
  1. ELOCON [Suspect]
     Dosage: UNK
     Dates: start: 20130308
  2. CETRIZINE [Concomitant]
     Dosage: UNK
     Dates: start: 20130228
  3. FEXOFENADINE HYDROCHLORIDE [Concomitant]
     Dosage: UNK
     Dates: start: 20130303
  4. MEFENAMIC ACID [Concomitant]
     Dosage: UNK
     Dates: start: 20121122, end: 20121210
  5. MEFENAMIC ACID [Concomitant]
     Dosage: UNK
     Dates: start: 20130225
  6. PENICILLIN V [Concomitant]
     Dosage: UNK
     Dates: start: 20121231, end: 20130110

REACTIONS (3)
  - Hypersensitivity [Recovering/Resolving]
  - Dermatitis allergic [Recovering/Resolving]
  - Local swelling [Recovering/Resolving]
